FAERS Safety Report 4962536-4 (Version None)
Quarter: 2006Q1

REPORT INFORMATION
  Report Type: 
  Country: None (occurrence: None)
  Receive Date: 20060201
  Receipt Date: 20051114
  Transmission Date: 20060701
  Serious: No
  Sender: FDA-Public Use
  Company Number: 2005PV004396

PATIENT
  Age: 76 Year
  Sex: Female
  Weight: 86.1834 kg

DRUGS (5)
  1. BYETTA [Suspect]
     Indication: DIABETES MELLITUS NON-INSULIN-DEPENDENT
     Dosage: 5 MCG; BID; SC
     Route: 058
     Dates: start: 20051108
  2. METFORMIN [Concomitant]
  3. MOBIC [Concomitant]
  4. EPIDRIN [Concomitant]
  5. INDERAL LA [Concomitant]

REACTIONS (3)
  - BREAST MASS [None]
  - INJECTION SITE DISCOMFORT [None]
  - MASTITIS [None]
